FAERS Safety Report 24139952 (Version 2)
Quarter: 2024Q3

REPORT INFORMATION
  Report Type: Spontaneous
  Country: CN (occurrence: CN)
  Receive Date: 20240726
  Receipt Date: 20240801
  Transmission Date: 20241017
  Serious: Yes (Other)
  Sender: SANOFI AVENTIS
  Company Number: CN-MLMSERVICE-20240715-PI132577-00249-1

PATIENT
  Age: 65 Year
  Sex: Male

DRUGS (16)
  1. OXALIPLATIN [Suspect]
     Active Substance: OXALIPLATIN
     Indication: Metastases to lymph nodes
     Dosage: 200 MG, Q3W, 200 ON DAY 1
     Route: 042
     Dates: start: 20210720
  2. OXALIPLATIN [Suspect]
     Active Substance: OXALIPLATIN
     Indication: Intestinal metastasis
     Dosage: 200 MG, Q3W, 200 ON DAY 1
     Route: 042
     Dates: start: 20210817
  3. OXALIPLATIN [Suspect]
     Active Substance: OXALIPLATIN
     Indication: Colorectal cancer
     Dosage: 200 MG, Q3W, 200 ON DAY 1
     Route: 042
     Dates: start: 20210907
  4. OXALIPLATIN [Suspect]
     Active Substance: OXALIPLATIN
     Dosage: 200 MG, Q3W, 200 ON DAY 1
     Route: 042
     Dates: start: 20210928
  5. OXALIPLATIN [Suspect]
     Active Substance: OXALIPLATIN
     Dosage: 200 MG, Q3W, 200 ON DAY 1
     Route: 042
     Dates: start: 20211019
  6. OXALIPLATIN [Suspect]
     Active Substance: OXALIPLATIN
     Dosage: 200 MG, Q3W, 200 ON DAY 1
     Route: 042
     Dates: start: 20211116
  7. OXALIPLATIN [Suspect]
     Active Substance: OXALIPLATIN
     Dosage: 200 MG, Q3W, 200 ON DAY 1
     Route: 042
     Dates: start: 20211207
  8. OXALIPLATIN [Suspect]
     Active Substance: OXALIPLATIN
     Dosage: 200 MG, Q3W, 200 ON DAY 1
     Route: 042
     Dates: start: 20211228, end: 2022
  9. CAPECITABINE [Concomitant]
     Active Substance: CAPECITABINE
     Indication: Metastases to lymph nodes
     Dosage: 1500 MG, BID (D1?14)
     Route: 048
     Dates: start: 20210720
  10. CAPECITABINE [Concomitant]
     Active Substance: CAPECITABINE
     Indication: Intestinal metastasis
     Dosage: 1500 MG, BID (D1?14)
     Route: 048
     Dates: start: 20210817
  11. CAPECITABINE [Concomitant]
     Active Substance: CAPECITABINE
     Indication: Colorectal cancer
     Dosage: 1500 MG, BID (D1?14)
     Route: 048
     Dates: start: 20210907
  12. CAPECITABINE [Concomitant]
     Active Substance: CAPECITABINE
     Dosage: 1500 MG, BID (D1?14)
     Route: 048
     Dates: start: 20210928
  13. CAPECITABINE [Concomitant]
     Active Substance: CAPECITABINE
     Dosage: 1500 MG, BID (D1?14)
     Route: 048
     Dates: start: 20211019
  14. CAPECITABINE [Concomitant]
     Active Substance: CAPECITABINE
     Dosage: 1500 MG, BID (D1?14)
     Route: 048
     Dates: start: 20211116
  15. CAPECITABINE [Concomitant]
     Active Substance: CAPECITABINE
     Dosage: 1500 MG, BID (D1?14)
     Route: 048
     Dates: start: 20211207
  16. CAPECITABINE [Concomitant]
     Active Substance: CAPECITABINE
     Dosage: 1500 MG, BID (D1?14)
     Route: 048
     Dates: start: 20211228, end: 2022

REACTIONS (6)
  - Ascites [Recovered/Resolved]
  - Peritoneal thickening [Recovered/Resolved]
  - Gastrointestinal wall thickening [Recovered/Resolved]
  - Vasodilatation [Recovered/Resolved]
  - Hyperplasia [Unknown]
  - Splenomegaly [Recovered/Resolved]

NARRATIVE: CASE EVENT DATE: 20210101
